FAERS Safety Report 20744638 (Version 1)
Quarter: 2022Q2

REPORT INFORMATION
  Report Type: Spontaneous
  Country: US (occurrence: US)
  Receive Date: 20220425
  Receipt Date: 20220425
  Transmission Date: 20220720
  Serious: No
  Sender: FDA-Public Use
  Company Number: US-PFIZER INC-2019474271

PATIENT
  Age: 64 Year
  Sex: Female

DRUGS (2)
  1. CHANTIX [Suspect]
     Active Substance: VARENICLINE TARTRATE
     Indication: Anxiety
     Dosage: UNK, DAILY (STARTER PACK)
     Dates: start: 2009
  2. CHANTIX [Suspect]
     Active Substance: VARENICLINE TARTRATE
     Indication: Smoking cessation therapy
     Dosage: CONTINUING PACKS;ON AND OFF PERIODICALLY
     Dates: start: 2009

REACTIONS (2)
  - Abnormal dreams [Unknown]
  - Intentional product misuse [Unknown]

NARRATIVE: CASE EVENT DATE: 20090101
